FAERS Safety Report 4853905-1 (Version None)
Quarter: 2005Q4

REPORT INFORMATION
  Report Type: 
  Country: None (occurrence: None)
  Receive Date: 20051213
  Receipt Date: 20051130
  Transmission Date: 20060501
  Serious: Yes (Other)
  Sender: FDA-Public Use
  Company Number: A-US2005-10832

PATIENT
  Age: 36 Year
  Sex: Female
  Weight: 92 kg

DRUGS (17)
  1. TRACLEER [Suspect]
     Indication: PULMONARY HYPERTENSION
     Dosage: 125 MG, BID, ORAL; 62.5 MG, ORAL
     Route: 048
     Dates: start: 20010101, end: 20040824
  2. TRACLEER [Suspect]
     Indication: PULMONARY HYPERTENSION
     Dosage: 125 MG, BID, ORAL; 62.5 MG, ORAL
     Route: 048
     Dates: start: 20040901, end: 20050801
  3. TRACLEER [Suspect]
     Indication: PULMONARY HYPERTENSION
     Dosage: 125 MG, BID, ORAL; 62.5 MG, ORAL
     Route: 048
     Dates: start: 20050201, end: 20050801
  4. CYTOXAN [Suspect]
     Dates: start: 20040101, end: 20040827
  5. METHOTREXATE [Suspect]
     Dosage: 15 MG, Q1WEEK, ORAL
     Route: 048
     Dates: start: 20010101, end: 20020101
  6. IMURAN [Suspect]
  7. PREDNISONE [Concomitant]
  8. NORVASC [Concomitant]
  9. FLOVENT [Concomitant]
  10. COMBIVENT [Concomitant]
  11. ANTIHYPERTENSIVES [Concomitant]
  12. COUMADIN [Concomitant]
  13. SYNTHROID [Concomitant]
  14. LANSOPRAZOLE [Concomitant]
  15. PLAQUENIL [Concomitant]
  16. FOLIC ACID [Concomitant]
  17. OXYGEN (OXYGEN) [Concomitant]

REACTIONS (28)
  - ALOPECIA [None]
  - ATELECTASIS [None]
  - BACK PAIN [None]
  - DEEP VEIN THROMBOSIS [None]
  - DIARRHOEA [None]
  - GASTROOESOPHAGEAL REFLUX DISEASE [None]
  - HAEMOTHORAX [None]
  - HEPATIC STEATOSIS [None]
  - HYPERCOAGULATION [None]
  - HYPOTENSION [None]
  - LIVER DISORDER [None]
  - MIXED CONNECTIVE TISSUE DISEASE [None]
  - NAUSEA [None]
  - NEPHROLITHIASIS [None]
  - NEUTROPENIA [None]
  - NIGHT SWEATS [None]
  - PERICARDIAL EFFUSION [None]
  - PERICARDIAL HAEMORRHAGE [None]
  - PERICARDITIS [None]
  - PLEURAL EFFUSION [None]
  - PNEUMONIA [None]
  - POLYARTHRITIS [None]
  - PULMONARY EMBOLISM [None]
  - RASH [None]
  - RENAL FAILURE [None]
  - SLEEP DISORDER [None]
  - VOMITING [None]
  - WHITE BLOOD CELL COUNT DECREASED [None]
